FAERS Safety Report 10095540 (Version 1)
Quarter: 2014Q2

REPORT INFORMATION
  Report Type: Spontaneous
  Country: FR (occurrence: FR)
  Receive Date: 20140422
  Receipt Date: 20140422
  Transmission Date: 20141212
  Serious: Yes (Other)
  Sender: FDA-Public Use
  Company Number: FR-ASTRAZENECA-2014SE26696

PATIENT
  Age: 22245 Day
  Sex: Female

DRUGS (5)
  1. XEROQUEL [Suspect]
     Indication: DEPRESSION
     Dosage: 50 MG DAILY WITH PROGRESSIVE INCREASE TO 150 MG DAILY FOR ONE WEEK
     Route: 048
     Dates: start: 20140123, end: 201401
  2. XEROQUEL [Suspect]
     Indication: DEPRESSION
     Route: 048
     Dates: start: 20140130, end: 20140211
  3. PROZAC [Concomitant]
     Indication: MAJOR DEPRESSION
     Route: 048
     Dates: start: 20140103
  4. LYSANXIA [Concomitant]
     Indication: ANXIETY
     Route: 048
     Dates: start: 201308
  5. LEVOTHYROX [Concomitant]
     Indication: HYPOTHYROIDISM
     Route: 048

REACTIONS (1)
  - Deep vein thrombosis [Recovered/Resolved]
